FAERS Safety Report 19074200 (Version 1)
Quarter: 2021Q1

REPORT INFORMATION
  Report Type: Spontaneous
  Country: US (occurrence: US)
  Receive Date: 20210330
  Receipt Date: 20210330
  Transmission Date: 20210420
  Serious: Yes (Hospitalization)
  Sender: FDA-Public Use
  Company Number: US-BAUSCH-BL-2021-004098

PATIENT
  Age: 75 Year
  Sex: Female

DRUGS (2)
  1. XIFAXAN [Suspect]
     Active Substance: RIFAXIMIN
     Indication: HEPATIC ENCEPHALOPATHY
     Route: 048
  2. LACTULOSE. [Suspect]
     Active Substance: LACTULOSE
     Indication: PRODUCT USED FOR UNKNOWN INDICATION
     Route: 065

REACTIONS (9)
  - Ammonia increased [Unknown]
  - Inability to afford medication [Unknown]
  - Fall [Unknown]
  - Insurance issue [Unknown]
  - Vomiting [Unknown]
  - Therapy interrupted [Unknown]
  - Diarrhoea [Unknown]
  - Cerebrovascular accident [Unknown]
  - Balance disorder [Unknown]
